FAERS Safety Report 13872380 (Version 3)
Quarter: 2018Q2

REPORT INFORMATION
  Report Type: Spontaneous
  Country: US (occurrence: US)
  Receive Date: 20170816
  Receipt Date: 20180409
  Transmission Date: 20180711
  Serious: No
  Sender: FDA-Public Use
  Company Number: US-PFIZER INC-2017351317

PATIENT
  Age: 52 Year
  Sex: Female

DRUGS (16)
  1. STOOL SOFTENER (DOCUSATE) [Concomitant]
     Active Substance: DOCUSATE
     Dosage: UNK
  2. VENTOLIN HFA [Concomitant]
     Active Substance: ALBUTEROL SULFATE
     Dosage: UNK
  3. IBRANCE [Suspect]
     Active Substance: PALBOCICLIB
     Dosage: 125 MG, CYCLIC (ONCE DAILY WITH FOOD FOR 21 DAYS, THEN 7 DAYS OFF THEN REPEAT)
     Route: 048
     Dates: start: 201604
  4. AZITHROMYCIN ANHYDROUS. [Concomitant]
     Active Substance: AZITHROMYCIN ANHYDROUS
     Dosage: UNK
  5. IBRANCE [Suspect]
     Active Substance: PALBOCICLIB
     Indication: BREAST CANCER FEMALE
     Dosage: 125 MG, CYCLIC (ONCE DAILY WITH FOOD FOR 21 DAYS, THEN 7 DAYS OFF)/THEN REPEAT
     Route: 048
     Dates: start: 20160418
  6. FLUVIRIN NOS [Concomitant]
     Active Substance: INFLUENZA VIRUS VACCINE
     Dosage: UNK
     Dates: start: 2015, end: 2016
  7. PRILOSEC [Concomitant]
     Active Substance: OMEPRAZOLE MAGNESIUM
     Dosage: UNK
  8. MIRALAX [Concomitant]
     Active Substance: POLYETHYLENE GLYCOL 3350
     Dosage: UNK
  9. EXEMESTANE. [Concomitant]
     Active Substance: EXEMESTANE
     Dosage: UNK
  10. AZELASTINE HCL [Concomitant]
     Active Substance: AZELASTINE HYDROCHLORIDE
     Dosage: UNK
  11. MULTI TABS WOMAN 50+ [Concomitant]
     Dosage: UNK
  12. METHYLPREDNISOLONE. [Concomitant]
     Active Substance: METHYLPREDNISOLONE
     Dosage: UNK
  13. ZITHROMAX [Concomitant]
     Active Substance: AZITHROMYCIN DIHYDRATE
     Dosage: UNK
  14. IBRANCE [Suspect]
     Active Substance: PALBOCICLIB
     Dosage: 125 MG, CYCLIC (ONCE DAILY WITH FOOD FOR 21 DAYS, THEN 7 DAYS OFF)
     Route: 048
     Dates: start: 20160418
  15. FLONASE ALGY [Concomitant]
     Dosage: 50 UG, UNK
  16. FLONASE [Concomitant]
     Active Substance: FLUTICASONE PROPIONATE
     Dosage: UNK

REACTIONS (2)
  - Acne [Not Recovered/Not Resolved]
  - Constipation [Not Recovered/Not Resolved]
